FAERS Safety Report 5168752-3 (Version None)
Quarter: 2006Q4

REPORT INFORMATION
  Report Type: 
  Country: None (occurrence: None)
  Receive Date: 20061211
  Receipt Date: 20061127
  Transmission Date: 20070319
  Serious: Yes (Disabling)
  Sender: FDA-Public Use
  Company Number: SEWYE680229NOV06

PATIENT
  Sex: Female

DRUGS (3)
  1. ENBREL [Suspect]
     Indication: ARTHRITIS
     Dosage: 50 MG PER WEEK
     Route: 058
     Dates: start: 20051209, end: 20060620
  2. ALVEDON [Concomitant]
     Dosage: UNKNOWN
     Route: 048
  3. MOBIC [Concomitant]
     Dosage: UNKNOWN
     Route: 048

REACTIONS (2)
  - MULTIPLE SCLEROSIS [None]
  - OPTIC NEURITIS [None]
